FAERS Safety Report 21226654 (Version 2)
Quarter: 2024Q2

REPORT INFORMATION
  Report Type: Spontaneous
  Country: US (occurrence: US)
  Receive Date: 20220818
  Receipt Date: 20240516
  Transmission Date: 20240716
  Serious: No
  Sender: FDA-Public Use
  Company Number: US-JNJFOC-20220812352

PATIENT
  Age: 46 Year
  Sex: Male

DRUGS (8)
  1. PREZISTA [Suspect]
     Active Substance: DARUNAVIR ETHANOLATE
     Indication: HIV infection
     Route: 048
     Dates: start: 20111117, end: 20111222
  2. TIVICAY [Suspect]
     Active Substance: DOLUTEGRAVIR SODIUM
     Indication: HIV infection
     Route: 065
     Dates: start: 20150515
  3. EMTRICITABINE\TENOFOVIR DISOPROXIL FUMARATE [Suspect]
     Active Substance: EMTRICITABINE\TENOFOVIR DISOPROXIL FUMARATE
     Indication: HIV infection
     Route: 065
     Dates: start: 20111117, end: 20170208
  4. EMTRICITABINE\TENOFOVIR ALAFENAMIDE FUMARATE [Suspect]
     Active Substance: EMTRICITABINE\TENOFOVIR ALAFENAMIDE FUMARATE
     Indication: HIV infection
     Route: 065
     Dates: start: 20170209
  5. NORVIR [Suspect]
     Active Substance: RITONAVIR
     Indication: HIV infection
     Route: 065
     Dates: start: 20110117, end: 20150514
  6. NORVIR [Suspect]
     Active Substance: RITONAVIR
     Route: 065
     Dates: start: 20111223
  7. ISENTRESS [Suspect]
     Active Substance: RALTEGRAVIR POTASSIUM
     Indication: HIV infection
     Route: 065
     Dates: start: 20111117, end: 20111222
  8. PENTAMIDINE [Concomitant]
     Active Substance: PENTAMIDINE

REACTIONS (5)
  - Hyperlipidaemia [Not Recovered/Not Resolved]
  - Urticaria chronic [Recovering/Resolving]
  - Dermatophytosis of nail [Recovering/Resolving]
  - Asteatosis [Recovering/Resolving]
  - Hepatic function abnormal [Not Recovered/Not Resolved]

NARRATIVE: CASE EVENT DATE: 20111215
